FAERS Safety Report 10286891 (Version 2)
Quarter: 2015Q3

REPORT INFORMATION
  Report Type: Spontaneous
  Country: US (occurrence: US)
  Receive Date: 20140709
  Receipt Date: 20150819
  Transmission Date: 20151125
  Serious: No
  Sender: FDA-Public Use
  Company Number: US-009507513-1407USA004250

PATIENT
  Sex: Male

DRUGS (1)
  1. NOXAFIL [Suspect]
     Active Substance: POSACONAZOLE
     Indication: INFECTION PROPHYLAXIS
     Dosage: 200 MG, TID, DELAYED RELEASE TABLET, WITH MEALS
     Route: 048

REACTIONS (3)
  - Transcription medication error [Unknown]
  - No adverse event [Unknown]
  - Accidental overdose [Unknown]
